FAERS Safety Report 17406500 (Version 1)
Quarter: 2020Q1

REPORT INFORMATION
  Report Type: Spontaneous
  Country: US (occurrence: US)
  Receive Date: 20200211
  Receipt Date: 20200211
  Transmission Date: 20200409
  Serious: Yes (Hospitalization)
  Sender: FDA-Public Use
  Company Number: None

PATIENT
  Age: 66 Year
  Sex: Male
  Weight: 135 kg

DRUGS (9)
  1. METFORMIN [Concomitant]
     Active Substance: METFORMIN HYDROCHLORIDE
  2. VITAMIN D3 [Concomitant]
     Active Substance: CHOLECALCIFEROL
  3. BABY ASPIRIN [Concomitant]
     Active Substance: ASPIRIN
  4. CRESTOR [Concomitant]
     Active Substance: ROSUVASTATIN CALCIUM
  5. TRULICITY [Suspect]
     Active Substance: DULAGLUTIDE
     Indication: GLYCOSYLATED HAEMOGLOBIN INCREASED
     Dosage: ?          QUANTITY:1 INJECTION(S);OTHER FREQUENCY:ONCE A WEEK;?
     Route: 058
  6. AMLODIPINE [Concomitant]
     Active Substance: AMLODIPINE BESYLATE
  7. METOPROLOL. [Concomitant]
     Active Substance: METOPROLOL
  8. FENOFIBRATE. [Concomitant]
     Active Substance: FENOFIBRATE
  9. LOSARTAN. [Concomitant]
     Active Substance: LOSARTAN

REACTIONS (9)
  - Dehydration [None]
  - Blood potassium decreased [None]
  - Burning sensation [None]
  - Diarrhoea [None]
  - Dyspnoea [None]
  - Abdominal pain upper [None]
  - Tremor [None]
  - Dyskinesia [None]
  - Speech disorder [None]

NARRATIVE: CASE EVENT DATE: 20190605
